FAERS Safety Report 7170347-7 (Version None)
Quarter: 2010Q4

REPORT INFORMATION
  Report Type: 
  Country: None (occurrence: None)
  Receive Date: 20101217
  Receipt Date: 20100719
  Transmission Date: 20110411
  Serious: No
  Sender: FDA-Public Use
  Company Number: A0868669A

PATIENT
  Age: 53 Year
  Sex: Female

DRUGS (1)
  1. AVANDARYL [Suspect]
     Dosage: 2TAB PER DAY
     Route: 048
     Dates: start: 20070501, end: 20100701

REACTIONS (2)
  - DRUG INEFFECTIVE [None]
  - GLYCOSYLATED HAEMOGLOBIN INCREASED [None]
